FAERS Safety Report 20659490 (Version 1)
Quarter: 2022Q1

REPORT INFORMATION
  Report Type: Spontaneous
  Country: HN (occurrence: HN)
  Receive Date: 20220331
  Receipt Date: 20220331
  Transmission Date: 20220424
  Serious: Yes (Other)
  Sender: FDA-Public Use
  Company Number: HN-PFIZER INC-202200455860

PATIENT
  Age: 55 Year
  Sex: Female

DRUGS (1)
  1. LIPITOR [Suspect]
     Active Substance: ATORVASTATIN CALCIUM
     Dosage: 1 DF (PILL), DAILY
     Route: 048
     Dates: start: 2020

REACTIONS (6)
  - Joint injury [Unknown]
  - Bedridden [Unknown]
  - Gait inability [Unknown]
  - Limb injury [Unknown]
  - Illness [Unknown]
  - Pain [Unknown]
